FAERS Safety Report 9769414 (Version 1)
Quarter: 2013Q3

REPORT INFORMATION
  Report Type: Spontaneous
  Country: US (occurrence: None)
  Receive Date: 20130909
  Receipt Date: 20130909
  Transmission Date: 20140515
  Serious: Yes (Other)
  Sender: FDA-Public Use
  Company Number: 2010US-37509

PATIENT
  Age: 68 Year
  Sex: Female

DRUGS (1)
  1. IBUPROFEN (IBUPROFEN) [Suspect]
     Indication: ARTHRALGIA
     Dosage: 2400 MG, DAILY(600 MG EVERY 6 TO 8 H)

REACTIONS (3)
  - Neutropenia [None]
  - Weight decreased [None]
  - White blood cell count decreased [None]
